FAERS Safety Report 14581816 (Version 1)
Quarter: 2018Q1

REPORT INFORMATION
  Report Type: Spontaneous
  Country: IT (occurrence: IT)
  Receive Date: 20180228
  Receipt Date: 20180228
  Transmission Date: 20180509
  Serious: Yes (Other)
  Sender: FDA-Public Use
  Company Number: PHHY2017IT100239

PATIENT
  Sex: Male
  Weight: 2.03 kg

DRUGS (6)
  1. SODIUM CHLORIDE. [Suspect]
     Active Substance: SODIUM CHLORIDE
     Indication: FOETAL EXPOSURE DURING PREGNANCY
     Dosage: MATERNAL DOSE: 1000 ML, UNK
     Route: 064
  2. CINACALCET. [Suspect]
     Active Substance: CINACALCET
     Indication: FOETAL EXPOSURE DURING PREGNANCY
     Dosage: MATERNAL USE: UNKNOWN
     Route: 064
  3. CHOLECALCIFEROL [Suspect]
     Active Substance: CHOLECALCIFEROL
     Indication: FOETAL EXPOSURE DURING PREGNANCY
     Dosage: MATERNAL DOSE: 600 U DAILY
     Route: 064
  4. VITAMIN C [Suspect]
     Active Substance: ASCORBIC ACID
     Indication: FOETAL EXPOSURE DURING PREGNANCY
     Dosage: MATERNAL DOSE: UNKNOWN
     Route: 064
  5. CINACALCET. [Suspect]
     Active Substance: CINACALCET
     Dosage: MATERNAL DOSE:15-30 MG, QD
     Route: 064
  6. CHOLECALCIFEROL [Suspect]
     Active Substance: CHOLECALCIFEROL
     Dosage: MATERNAL DOSE: 1200 U DAILY
     Route: 064

REACTIONS (3)
  - Low birth weight baby [Unknown]
  - Foetal exposure during pregnancy [Unknown]
  - Premature baby [Unknown]
